FAERS Safety Report 24567984 (Version 1)
Quarter: 2024Q4

REPORT INFORMATION
  Report Type: Spontaneous
  Country: US (occurrence: US)
  Receive Date: 20241031
  Receipt Date: 20241031
  Transmission Date: 20250114
  Serious: Yes (Other)
  Sender: OCTAPHARMA
  Company Number: US-OCTA-2024000005

PATIENT
  Age: 26 Year
  Sex: Male

DRUGS (3)
  1. HUMAN IMMUNOGLOBULIN G [Suspect]
     Active Substance: HUMAN IMMUNOGLOBULIN G
     Indication: Encephalitis autoimmune
     Route: 042
  2. VALPROATE [Concomitant]
     Active Substance: VALPROIC ACID
     Dosage: FREE LEVEL AT 20.0 G/ML
  3. METHYLPREDNISOLONE [Concomitant]
     Active Substance: METHYLPREDNISOLONE
     Dosage: 5 DAYS
     Route: 042

REACTIONS (1)
  - Nephropathy toxic [Unknown]
